FAERS Safety Report 6202398-0 (Version None)
Quarter: 2009Q2

REPORT INFORMATION
  Report Type: 
  Country: None (occurrence: None)
  Receive Date: 20090526
  Receipt Date: 20090515
  Transmission Date: 20091009
  Serious: Yes (Death, Other)
  Sender: FDA-Public Use
  Company Number: DK-ELI_LILLY_AND_COMPANY-DK200905002691

PATIENT
  Age: 34 Year
  Sex: Female
  Weight: 82 kg

DRUGS (5)
  1. ZYPREXA [Suspect]
     Indication: PSYCHOTIC DISORDER
     Dosage: 5 MG, UNK
     Dates: start: 20080818
  2. SERDOLECT [Concomitant]
     Indication: SCHIZOPHRENIA, PARANOID TYPE
     Dosage: 24 MG, UNK
     Route: 048
     Dates: start: 20080808
  3. CIPRALEX [Concomitant]
     Indication: DEPRESSIVE SYMPTOM
     Dosage: 20 MG, UNK
     Dates: start: 20080101
  4. CORODIL [Concomitant]
     Indication: ESSENTIAL HYPERTENSION
     Dosage: 15 MG, DAILY (1/D)
     Dates: start: 20071001
  5. GESTODENE AND ETHINYL ESTRADIOL [Concomitant]
     Indication: CONTRACEPTION

REACTIONS (2)
  - DEATH [None]
  - ELECTROCARDIOGRAM QT PROLONGED [None]
